FAERS Safety Report 6372516-2 (Version None)
Quarter: 2009Q3

REPORT INFORMATION
  Report Type: 
  Country: None (occurrence: None)
  Receive Date: 20090924
  Receipt Date: 20080915
  Transmission Date: 20100115
  Serious: No
  Sender: FDA-Public Use
  Company Number: US-ASTRAZENECA-2008UW19107

PATIENT
  Age: 84 Year
  Sex: Female
  Weight: 59.4 kg

DRUGS (11)
  1. SEROQUEL [Suspect]
     Indication: AGITATION
     Route: 048
  2. SEROQUEL [Suspect]
     Indication: SLEEP DISORDER
     Route: 048
  3. SEROQUEL [Suspect]
     Route: 048
     Dates: start: 20070101
  4. SEROQUEL [Suspect]
     Route: 048
     Dates: start: 20070101
  5. SEROQUEL [Suspect]
     Route: 048
     Dates: end: 20080501
  6. SEROQUEL [Suspect]
     Route: 048
     Dates: end: 20080501
  7. FLUOXETINE [Concomitant]
  8. LISINIPRIL [Concomitant]
  9. NAMENDA [Concomitant]
  10. ARICEPT [Concomitant]
  11. EXELON [Concomitant]

REACTIONS (8)
  - AGITATION [None]
  - ANGER [None]
  - DELUSION [None]
  - FALL [None]
  - HALLUCINATION [None]
  - INSOMNIA [None]
  - MUSCULAR WEAKNESS [None]
  - RESTLESSNESS [None]
